FAERS Safety Report 10027598 (Version 1)
Quarter: 2014Q1

REPORT INFORMATION
  Report Type: Spontaneous
  Country: SE (occurrence: SE)
  Receive Date: 20140321
  Receipt Date: 20140321
  Transmission Date: 20141002
  Serious: Yes (Other)
  Sender: FDA-Public Use
  Company Number: SE-PFIZER INC-2014081144

PATIENT
  Sex: Male

DRUGS (14)
  1. CORDARONE [Suspect]
     Indication: CARDIAC ARREST
     Dosage: 600 MG, DAILY
     Route: 048
  2. CORDARONE [Suspect]
     Dosage: 400 MG, DAILY
     Route: 048
  3. CORDARONE [Suspect]
     Dosage: 200 MG, DAILY
     Route: 048
     Dates: start: 20140226
  4. ALLOPURINOL [Concomitant]
     Indication: GOUT
     Dosage: UNK
  5. BETOLVEX [Concomitant]
     Dosage: UNK
  6. FOLACIN [Concomitant]
     Dosage: UNK
  7. CARVEDILOL [Concomitant]
     Dosage: UNK
  8. IMPUGAN [Concomitant]
     Indication: DIURETIC THERAPY
     Dosage: UNK
  9. INSPRA [Concomitant]
     Indication: CARDIAC DISORDER
     Dosage: UNK
  10. METFORMIN [Concomitant]
     Dosage: UNK
     Dates: end: 20140314
  11. MINDIAB [Concomitant]
     Dosage: UNK
     Dates: end: 20140314
  12. RAMIPRIL [Concomitant]
  13. SIMIDON [Concomitant]
  14. ALVEDON [Concomitant]
     Indication: PAIN IN EXTREMITY
     Dosage: UNK

REACTIONS (4)
  - Renal impairment [Not Recovered/Not Resolved]
  - Blood creatinine increased [Not Recovered/Not Resolved]
  - Eye disorder [Not Recovered/Not Resolved]
  - Photophobia [Not Recovered/Not Resolved]
